FAERS Safety Report 7219581-8 (Version None)
Quarter: 2011Q1

REPORT INFORMATION
  Report Type: 
  Country: None (occurrence: None)
  Receive Date: 20110103
  Receipt Date: 20101223
  Transmission Date: 20110831
  Serious: Yes (Hospitalization, Disabling)
  Sender: FDA-Public Use
  Company Number: 2010SP050517

PATIENT
  Age: 28 Year
  Weight: 47.6277 kg

DRUGS (6)
  1. NUVARING [Suspect]
     Indication: CONTRACEPTION
     Dates: start: 20030101, end: 20070401
  2. PREDNISONE [Concomitant]
  3. UNSPECIFIED MEDICINES [Suspect]
     Indication: PRODUCT USED FOR UNKNOWN INDICATION
  4. UNSPECIFIED STEROIDS [Suspect]
     Indication: PRODUCT USED FOR UNKNOWN INDICATION
  5. COLAZAL [Concomitant]
  6. COUMADIN [Suspect]
     Indication: THROMBOSIS

REACTIONS (12)
  - RENAL VEIN THROMBOSIS [None]
  - INSOMNIA [None]
  - COLITIS ULCERATIVE [None]
  - IMPAIRED WORK ABILITY [None]
  - ALOPECIA [None]
  - HAEMORRHAGE [None]
  - PSEUDOPOLYPOSIS [None]
  - INCREASED TENDENCY TO BRUISE [None]
  - ANXIETY [None]
  - DEEP VEIN THROMBOSIS [None]
  - GASTROINTESTINAL HAEMORRHAGE [None]
  - HAEMORRHOIDS [None]
